FAERS Safety Report 7490238-1 (Version None)
Quarter: 2011Q2

REPORT INFORMATION
  Report Type: 
  Country: None (occurrence: None)
  Receive Date: 20110519
  Receipt Date: 20110513
  Transmission Date: 20111010
  Serious: Yes (Other)
  Sender: FDA-Public Use
  Company Number: US-PFIZER INC-2011103688

PATIENT
  Sex: Female
  Weight: 79.365 kg

DRUGS (4)
  1. REBETOL [Concomitant]
     Dosage: UNK
  2. GLUCOTROL [Concomitant]
     Dosage: UNK
  3. NAVANE [Suspect]
     Dosage: 10 MG, UNK
     Route: 048
     Dates: start: 20110201, end: 20110101
  4. CALCIUM [Concomitant]
     Dosage: UNK

REACTIONS (1)
  - TARDIVE DYSKINESIA [None]
